FAERS Safety Report 13212188 (Version 1)
Quarter: 2017Q1

REPORT INFORMATION
  Report Type: Spontaneous
  Country: US (occurrence: US)
  Receive Date: 20170209
  Receipt Date: 20170209
  Transmission Date: 20170428
  Serious: No
  Sender: FDA-Public Use
  Company Number: US-ALLERGAN-1659031US

PATIENT
  Sex: Female

DRUGS (2)
  1. BOTOX [Suspect]
     Active Substance: ONABOTULINUMTOXINA
     Indication: BLEPHAROSPASM
     Dosage: 2-3 UNITS, SINGLE
     Route: 030
     Dates: start: 20160516, end: 20160516
  2. BOTOX [Suspect]
     Active Substance: ONABOTULINUMTOXINA
     Dosage: 2-3 UNITS, SINGLE
     Route: 030
     Dates: start: 20160516, end: 20160516

REACTIONS (14)
  - Malaise [Recovering/Resolving]
  - Back pain [Recovering/Resolving]
  - Lagophthalmos [Recovering/Resolving]
  - Dyspnoea [Recovering/Resolving]
  - Eyelid ptosis [Recovering/Resolving]
  - Arthralgia [Recovering/Resolving]
  - Ocular discomfort [Recovering/Resolving]
  - Eye contusion [Recovering/Resolving]
  - Pharyngeal hypoaesthesia [Recovering/Resolving]
  - Musculoskeletal pain [Recovering/Resolving]
  - Skin ulcer [Recovering/Resolving]
  - Neck pain [Recovering/Resolving]
  - Myalgia [Recovering/Resolving]
  - Headache [Recovering/Resolving]
